FAERS Safety Report 9241715 (Version 2)
Quarter: 2013Q3

REPORT INFORMATION
  Report Type: Spontaneous
  Country: DE (occurrence: DE)
  Receive Date: 20130419
  Receipt Date: 20130903
  Transmission Date: 20140515
  Serious: Yes (Other)
  Sender: FDA-Public Use
  Company Number: DE-PFIZER INC-2013118810

PATIENT
  Age: 73 Year
  Sex: Female

DRUGS (6)
  1. EDRONAX [Suspect]
     Indication: DEPRESSION
     Dosage: 4 MG, 1X/DAY
  2. METOPROLOL TARTRATE [Interacting]
     Dosage: UNK
  3. RAMIPRIL [Interacting]
     Dosage: UNK
  4. SPIRONOLACTONE [Interacting]
     Dosage: UNK
  5. TORASEMIDE [Interacting]
     Dosage: UNK
  6. L-THYROXIN [Interacting]
     Dosage: UNK

REACTIONS (2)
  - Drug interaction [Unknown]
  - Cardiomyopathy [Unknown]
